FAERS Safety Report 19087630 (Version 1)
Quarter: 2021Q2

REPORT INFORMATION
  Report Type: Spontaneous
  Country: US (occurrence: US)
  Receive Date: 20210402
  Receipt Date: 20210402
  Transmission Date: 20210717
  Serious: Yes (Other)
  Sender: FDA-Public Use
  Company Number: UY-ASTRAZENECA-2021A256212

PATIENT
  Age: 26295 Day
  Sex: Male

DRUGS (4)
  1. SYMBICORT [Suspect]
     Active Substance: BUDESONIDE\FORMOTEROL FUMARATE DIHYDRATE
     Dosage: UNKNOWN UNKNOWN
     Route: 055
     Dates: start: 202011
  2. BUDESONIDE. [Suspect]
     Active Substance: BUDESONIDE
     Route: 055
  3. PREDNISONE. [Concomitant]
     Active Substance: PREDNISONE
  4. PREDNISONE. [Concomitant]
     Active Substance: PREDNISONE
     Dosage: 20 MG

REACTIONS (13)
  - Swelling [Unknown]
  - Mobility decreased [Unknown]
  - Aphonia [Unknown]
  - Secretion discharge [Unknown]
  - Candida infection [Unknown]
  - Cough [Unknown]
  - Dyspnoea [Unknown]
  - Swollen tongue [Unknown]
  - Retching [Unknown]
  - Suspected COVID-19 [Unknown]
  - Urinary incontinence [Unknown]
  - Drug dependence [Unknown]
  - Withdrawal syndrome [Unknown]

NARRATIVE: CASE EVENT DATE: 20201122
